FAERS Safety Report 9282791 (Version 2)
Quarter: 2013Q2

REPORT INFORMATION
  Report Type: Spontaneous
  Country: US (occurrence: None)
  Receive Date: 20101130
  Receipt Date: 20130419
  Transmission Date: 20140414
  Serious: Yes (Life-Threatening)
  Sender: FDA-Public Use
  Company Number: 54973 RSAE110310RF001

PATIENT
  Age: 20 Month
  Sex: Female
  Weight: 10.43 kg

DRUGS (1)
  1. HYLAND^S TEETHING TABLETS [Suspect]
     Indication: TEETHING
     Dosage: 1-3 TABS  BID  EVRYOTHRDY

REACTIONS (3)
  - Grand mal convulsion [None]
  - Petit mal epilepsy [None]
  - Nuclear magnetic resonance imaging brain abnormal [None]
